FAERS Safety Report 19253149 (Version 3)
Quarter: 2021Q2

REPORT INFORMATION
  Report Type: Spontaneous
  Country: FR (occurrence: FR)
  Receive Date: 20210513
  Receipt Date: 20210617
  Transmission Date: 20210717
  Serious: Yes (Death, Other)
  Sender: FDA-Public Use
  Company Number: FR-SA-2021SA159888

PATIENT
  Age: 55 Year
  Sex: Female

DRUGS (1)
  1. CABLIVI [Suspect]
     Active Substance: CAPLACIZUMAB-YHDP
     Dosage: UNK

REACTIONS (2)
  - Acute respiratory distress syndrome [Fatal]
  - Pneumocystis jirovecii infection [Unknown]
